FAERS Safety Report 5585408-3 (Version None)
Quarter: 2008Q1

REPORT INFORMATION
  Report Type: 
  Country: None (occurrence: None)
  Receive Date: 20080109
  Receipt Date: 20071227
  Transmission Date: 20080703
  Serious: Yes (Hospitalization)
  Sender: FDA-Public Use
  Company Number: GB-BAUSCH-2007BL004638

PATIENT
  Age: 75 Year
  Sex: Female

DRUGS (2)
  1. MINIMS ATROPINE SULPHATE 1% [Suspect]
     Indication: STRESS ECHOCARDIOGRAM
  2. DOBUTAMINE [Suspect]
     Indication: STRESS ECHOCARDIOGRAM

REACTIONS (2)
  - CARDIOMYOPATHY [None]
  - STRESS CARDIOMYOPATHY [None]
